FAERS Safety Report 5812321-6 (Version None)
Quarter: 2008Q3

REPORT INFORMATION
  Report Type: 
  Country: None (occurrence: None)
  Receive Date: 20080714
  Receipt Date: 20080708
  Transmission Date: 20090109
  Serious: Yes (Other)
  Sender: FDA-Public Use
  Company Number: 2008SP011870

PATIENT
  Sex: Female

DRUGS (16)
  1. INTRON A [Suspect]
     Indication: HEPATITIS C
     Dosage: TIW; QD
     Dates: start: 19960101
  2. INTRON A [Suspect]
     Indication: HEPATITIS C
     Dosage: TIW; QD
     Dates: start: 19980101
  3. PEG-INTRON [Suspect]
     Indication: DRUG USE FOR UNKNOWN INDICATION
     Dates: start: 20070101
  4. LAMICTAL [Suspect]
     Indication: DRUG USE FOR UNKNOWN INDICATION
  5. TOPAMAX [Suspect]
     Indication: DRUG USE FOR UNKNOWN INDICATION
  6. MILK THRISTLE (CON.) [Concomitant]
  7. VITAMIN C (CON.) [Concomitant]
  8. VITAMIN D2 (CON.) [Concomitant]
  9. VITAMIN D3 (CON.) [Concomitant]
  10. B-12 (CON.) [Concomitant]
  11. B6 (CON.) [Concomitant]
  12. B100 (CON.) [Concomitant]
  13. MSM (CON.) [Concomitant]
  14. CALCIUM (CON.) [Concomitant]
  15. FOLIC ACID (CON.) [Concomitant]
  16. VITAMINS (CON.) [Concomitant]

REACTIONS (12)
  - ALOPECIA [None]
  - BIPOLAR DISORDER [None]
  - COELIAC DISEASE [None]
  - DRUG INEFFECTIVE [None]
  - IMMUNE SYSTEM DISORDER [None]
  - KERATOCONJUNCTIVITIS SICCA [None]
  - LIVER DISORDER [None]
  - MALABSORPTION [None]
  - MALAISE [None]
  - MUSCLE SPASMS [None]
  - THYROID DISORDER [None]
  - TOOTH DISORDER [None]
